FAERS Safety Report 7091998-4 (Version None)
Quarter: 2010Q4

REPORT INFORMATION
  Report Type: 
  Country: None (occurrence: None)
  Receive Date: 20101109
  Receipt Date: 20101104
  Transmission Date: 20110411
  Serious: Yes (Death, Life-Threatening, Hospitalization)
  Sender: FDA-Public Use
  Company Number: US-CELGENEUS-163-C5013-10090606

PATIENT
  Sex: Male
  Weight: 78.542 kg

DRUGS (15)
  1. CC-5013\PLACEBO [Suspect]
     Indication: PROSTATE CANCER
     Route: 048
     Dates: start: 20100510
  2. CC-5013\PLACEBO [Suspect]
     Route: 048
     Dates: start: 20100823, end: 20100831
  3. DOCETAXEL [Suspect]
     Indication: PROSTATE CANCER
     Route: 051
     Dates: start: 20100510
  4. DOCETAXEL [Suspect]
     Route: 051
     Dates: start: 20100823, end: 20100823
  5. PREDNISONE [Suspect]
     Indication: PROSTATE CANCER
     Route: 065
     Dates: start: 20100510
  6. PREDNISONE [Suspect]
     Route: 065
     Dates: start: 20100823, end: 20100823
  7. ASPIRIN [Concomitant]
     Indication: PROPHYLAXIS
     Route: 048
     Dates: start: 20090101
  8. CALCIUM WITH VITAMIN D [Concomitant]
     Indication: SUPPLEMENTATION THERAPY
     Dosage: 500-400MG
     Route: 048
     Dates: start: 20070101
  9. PLAVIX [Concomitant]
     Indication: ANTIPLATELET THERAPY
     Route: 048
     Dates: start: 20050101
  10. FLUDROCORTISONE [Concomitant]
     Indication: HYPERTENSION
     Route: 048
     Dates: start: 20080101
  11. MULTI-VITAMINS [Concomitant]
     Indication: SUPPLEMENTATION THERAPY
     Route: 065
     Dates: start: 20050101
  12. OMEPRAZOLE [Concomitant]
     Route: 048
     Dates: start: 20090101
  13. POTASSIUM CHLORIDE [Concomitant]
     Indication: SUPPLEMENTATION THERAPY
     Route: 048
     Dates: start: 20070101
  14. EPINEPHRINE [Concomitant]
     Route: 065
     Dates: start: 20100902
  15. ATROPINE [Concomitant]
     Route: 065
     Dates: start: 20100902

REACTIONS (5)
  - ARRHYTHMIA [None]
  - CARDIO-RESPIRATORY ARREST [None]
  - HYPOTENSION [None]
  - HYPOVOLAEMIA [None]
  - NEUTROPENIA [None]
